FAERS Safety Report 6122158-9 (Version None)
Quarter: 2009Q1

REPORT INFORMATION
  Report Type: 
  Country: None (occurrence: None)
  Receive Date: 20090318
  Receipt Date: 20090304
  Transmission Date: 20090719
  Serious: Yes (Death, Life-Threatening, Other)
  Sender: FDA-Public Use
  Company Number: PHHY2008JP03094

PATIENT
  Sex: Female

DRUGS (4)
  1. ZOLEDRONIC ACID [Suspect]
     Indication: OESOPHAGEAL CARCINOMA
     Dosage: 4 MG DILUTED TO 100 ML
     Route: 042
     Dates: start: 20070110, end: 20070110
  2. OXYCONTIN [Concomitant]
     Dosage: 30 MG/DAY
     Route: 048
     Dates: start: 20070110, end: 20070213
  3. NOVAMIN [Concomitant]
     Dosage: 15 MG/DAY
     Route: 048
     Dates: start: 20070110, end: 20070213
  4. FENTANYL [Concomitant]
     Dosage: 5 MG/DAU
     Route: 061
     Dates: start: 20070213, end: 20070228

REACTIONS (6)
  - BLOOD UREA INCREASED [None]
  - DISSEMINATED INTRAVASCULAR COAGULATION [None]
  - GENERAL PHYSICAL HEALTH DETERIORATION [None]
  - HYPERCAPNIA [None]
  - TRACHEOSTOMY [None]
  - TRACHEOSTOMY INFECTION [None]
